FAERS Safety Report 24816170 (Version 1)
Quarter: 2025Q1

REPORT INFORMATION
  Report Type: Report from Study
  Country: US (occurrence: US)
  Receive Date: 20250107
  Receipt Date: 20250107
  Transmission Date: 20250409
  Serious: Yes (Hospitalization, Other)
  Sender: PFIZER
  Company Number: US-PFIZER INC-PV202500001146

PATIENT
  Age: 15 Year
  Sex: Male
  Weight: 58 kg

DRUGS (9)
  1. CRIZOTINIB [Suspect]
     Active Substance: CRIZOTINIB
     Indication: Nasopharyngeal cancer
     Dates: start: 20150108, end: 20150423
  2. ZOLEDRONIC ACID [Suspect]
     Active Substance: ZOLEDRONIC ACID
  3. CYCLOPHOSPHAMIDE [Concomitant]
     Active Substance: CYCLOPHOSPHAMIDE
     Indication: Nasopharyngeal cancer
     Dates: start: 20150108, end: 20150413
  4. TOPOTECAN [Concomitant]
     Active Substance: TOPOTECAN HYDROCHLORIDE
     Dates: start: 20150108, end: 20150413
  5. SOLU-MEDROL [Concomitant]
     Active Substance: METHYLPREDNISOLONE SODIUM SUCCINATE
     Dosage: 30 MG, Q12H
  6. CALCIUM GLUCONATE [Concomitant]
     Active Substance: CALCIUM GLUCONATE
     Route: 042
  7. CAPECITABINE [Concomitant]
     Active Substance: CAPECITABINE
  8. DOCETAXEL [Concomitant]
     Active Substance: DOCETAXEL
  9. CARBOPLATIN [Concomitant]
     Active Substance: CARBOPLATIN

REACTIONS (12)
  - Decreased appetite [Unknown]
  - Bone pain [Recovering/Resolving]
  - Malnutrition [Unknown]
  - Oedema peripheral [Unknown]
  - Electrolyte imbalance [Recovering/Resolving]
  - Hypocalcaemia [Recovering/Resolving]
  - Arthralgia [Recovering/Resolving]
  - Periostitis [Unknown]
  - Hypertrophic osteoarthropathy [Unknown]
  - Joint swelling [Unknown]
  - Joint range of motion decreased [Unknown]
  - Gait inability [Unknown]

NARRATIVE: CASE EVENT DATE: 20150504
